FAERS Safety Report 8918883 (Version 1)
Quarter: 2012Q4

REPORT INFORMATION
  Report Type: Spontaneous
  Country: US (occurrence: None)
  Receive Date: 20121115
  Receipt Date: 20121115
  Transmission Date: 20130627
  Serious: Yes (Hospitalization, Other)
  Sender: FDA-Public Use
  Company Number: None

PATIENT
  Age: 59 Year
  Sex: Male
  Weight: 106.9 kg

DRUGS (1)
  1. ZOLEDRONIC ACID [Suspect]
     Indication: BONE METASTASES
     Dosage: 4 mg IV every 28 days
     Route: 042
     Dates: start: 20120327, end: 20121019

REACTIONS (1)
  - Pulmonary embolism [None]
